FAERS Safety Report 5003233-9 (Version None)
Quarter: 2006Q2

REPORT INFORMATION
  Report Type: 
  Country: None (occurrence: None)
  Receive Date: 20060510
  Receipt Date: 20060424
  Transmission Date: 20061013
  Serious: Yes (Other)
  Sender: FDA-Public Use
  Company Number: 2006EU000505

PATIENT
  Sex: Male

DRUGS (1)
  1. PROTOPIC [Suspect]
     Indication: ECZEMA
     Dosage: 1 G UID/QD, TOPICAL
     Route: 061
     Dates: start: 20050306, end: 20050330

REACTIONS (2)
  - LYMPHADENOPATHY [None]
  - SARCOIDOSIS [None]
